FAERS Safety Report 13570736 (Version 1)
Quarter: 2017Q2

REPORT INFORMATION
  Report Type: Spontaneous
  Country: US (occurrence: US)
  Receive Date: 20170522
  Receipt Date: 20170522
  Transmission Date: 20170830
  Serious: Yes (Other)
  Sender: FDA-Public Use
  Company Number: None

PATIENT
  Age: 63 Year
  Sex: Male
  Weight: 126 kg

DRUGS (9)
  1. BYDUREON [Suspect]
     Active Substance: EXENATIDE
     Indication: DIABETES MELLITUS
     Dosage: ?          QUANTITY:1 INJECTION(S);OTHER FREQUENCY:WEEKLY;?
     Route: 030
     Dates: start: 20170106, end: 20170519
  2. VITAMIN D [Concomitant]
     Active Substance: CHOLECALCIFEROL
  3. 81MG ASPIRIN [Concomitant]
  4. GLIPAZIDE ER [Concomitant]
  5. AMPLODAMINE/BESALATE [Concomitant]
  6. LOSARTIN [Concomitant]
     Active Substance: LOSARTAN
  7. AVORASTATIN 80 MG DR. REDDYS GENERIC FOR LIPITOR [Concomitant]
     Active Substance: ATORVASTATIN
  8. FISH OIL [Concomitant]
     Active Substance: FISH OIL
  9. MULTI VITAMIN [Concomitant]
     Active Substance: VITAMINS

REACTIONS (6)
  - Injection site pain [None]
  - Injection site nodule [None]
  - Injection site induration [None]
  - Pain in extremity [None]
  - Injection site pruritus [None]
  - Injection site swelling [None]

NARRATIVE: CASE EVENT DATE: 20170106
